FAERS Safety Report 10040768 (Version 1)
Quarter: 2014Q1

REPORT INFORMATION
  Report Type: Spontaneous
  Country: US (occurrence: US)
  Receive Date: 20140327
  Receipt Date: 20140327
  Transmission Date: 20141002
  Serious: Yes (Hospitalization)
  Sender: FDA-Public Use
  Company Number: US-JNJFOC-20140310103

PATIENT
  Age: 75 Year
  Sex: Male
  Weight: 89.9 kg

DRUGS (12)
  1. LEVAQUIN [Suspect]
     Indication: SINUSITIS
     Route: 048
     Dates: start: 20121220, end: 20121222
  2. DACOMITINIB [Suspect]
     Indication: NON-SMALL CELL LUNG CANCER
     Route: 048
     Dates: start: 20121126, end: 20121221
  3. PLACEBO [Suspect]
     Indication: NON-SMALL CELL LUNG CANCER
     Route: 048
     Dates: start: 20121126, end: 20121221
  4. CALCIUM, VITAMIN D [Concomitant]
     Indication: NUTRITIONAL SUPPLEMENTATION
     Route: 065
  5. HYDROCHLOROTHIAZIDE [Concomitant]
     Indication: HYPERTENSION
     Route: 065
  6. PREDNISONE [Concomitant]
     Indication: RHEUMATOID ARTHRITIS
     Route: 065
  7. TAMSULOSIN [Concomitant]
     Indication: BLADDER DISORDER
     Route: 065
  8. FEXOFENADINE [Concomitant]
     Indication: HYPERSENSITIVITY
     Route: 065
  9. ATENOLOL [Concomitant]
     Indication: HYPERTENSION
     Route: 065
  10. PRILOSEC [Concomitant]
     Indication: GASTROOESOPHAGEAL REFLUX DISEASE
     Route: 065
  11. ACETYLSALICYLIC  ACID [Concomitant]
     Indication: CARDIAC DISORDER
     Route: 065
  12. MORPHINE SULFATE [Concomitant]
     Indication: PAIN
     Route: 065

REACTIONS (2)
  - Dehydration [Recovered/Resolved]
  - Diarrhoea [Unknown]
